FAERS Safety Report 16568563 (Version 4)
Quarter: 2019Q4

REPORT INFORMATION
  Report Type: Report from Study
  Country: CO (occurrence: CO)
  Receive Date: 20190712
  Receipt Date: 20191209
  Transmission Date: 20200122
  Serious: Yes (Life-Threatening, Hospitalization)
  Sender: FDA-Public Use
  Company Number: PHHY2019CO161672

PATIENT
  Sex: Female
  Weight: 70 kg

DRUGS (3)
  1. REVOLADE [Suspect]
     Active Substance: ELTROMBOPAG
     Indication: IMMUNE THROMBOCYTOPENIC PURPURA
     Dosage: 2 DF (50 MG), QD (AT NIGHT)
     Route: 048
     Dates: start: 20181224
  2. REVOLADE [Suspect]
     Active Substance: ELTROMBOPAG
     Dosage: 75 MG, QD
     Route: 048
     Dates: start: 201910
  3. REVOLADE [Suspect]
     Active Substance: ELTROMBOPAG
     Dosage: 50 MG, QD
     Route: 048

REACTIONS (8)
  - Influenza [Unknown]
  - Nasal congestion [Unknown]
  - Drug ineffective [Unknown]
  - Cough [Unknown]
  - Incorrect dose administered [Unknown]
  - Hypersomnia [Unknown]
  - Immune thrombocytopenic purpura [Not Recovered/Not Resolved]
  - Disease recurrence [Not Recovered/Not Resolved]
